FAERS Safety Report 22349471 (Version 1)
Quarter: 2023Q2

REPORT INFORMATION
  Report Type: Spontaneous
  Country: US (occurrence: US)
  Receive Date: 20230522
  Receipt Date: 20230522
  Transmission Date: 20230722
  Serious: No
  Sender: FDA-Public Use
  Company Number: US-BAYER-2023A059377

PATIENT

DRUGS (1)
  1. ASTEPRO [Suspect]
     Active Substance: AZELASTINE HYDROCHLORIDE
     Indication: Antiallergic therapy
     Dosage: 2 SPRAYS IN EACH NOSETRILL PER DAY
     Route: 065

REACTIONS (1)
  - Drug ineffective [Not Recovered/Not Resolved]
